FAERS Safety Report 9801912 (Version 1)
Quarter: 2014Q1

REPORT INFORMATION
  Report Type: Spontaneous
  Country: US (occurrence: US)
  Receive Date: 20140107
  Receipt Date: 20140107
  Transmission Date: 20141002
  Serious: No
  Sender: FDA-Public Use
  Company Number: US-ALLERGAN-1311965US

PATIENT
  Age: 47 Year
  Sex: Female

DRUGS (4)
  1. ACZONE [Suspect]
     Indication: ACNE
     Dosage: UNK UNK, QHS
     Route: 061
     Dates: start: 20130801
  2. DEHYDRATOR CREAM [Concomitant]
     Indication: PRODUCT USED FOR UNKNOWN INDICATION
     Dosage: UNK, QAM
  3. LIGHTNER [Concomitant]
     Indication: PRODUCT USED FOR UNKNOWN INDICATION
     Dosage: UNK, QAM
  4. SUNSCREEN [Concomitant]
     Indication: PRODUCT USED FOR UNKNOWN INDICATION

REACTIONS (4)
  - Rash [Unknown]
  - Rash [Not Recovered/Not Resolved]
  - Rash [Not Recovered/Not Resolved]
  - Inappropriate schedule of drug administration [Unknown]
